FAERS Safety Report 13290256 (Version 1)
Quarter: 2017Q1

REPORT INFORMATION
  Report Type: Spontaneous
  Country: US (occurrence: US)
  Receive Date: 20170303
  Receipt Date: 20170303
  Transmission Date: 20170428
  Serious: No
  Sender: FDA-Public Use
  Company Number: US-ELI_LILLY_AND_COMPANY-US201702011826

PATIENT
  Age: 66 Year
  Sex: Female

DRUGS (4)
  1. HUMULIN R [Suspect]
     Active Substance: INSULIN HUMAN
     Dosage: 35 U, EACH EVENING
     Route: 065
     Dates: start: 20170212
  2. HUMULIN R [Suspect]
     Active Substance: INSULIN HUMAN
     Indication: TYPE 2 DIABETES MELLITUS
     Dosage: 45 U, EACH MORNING
     Route: 065
     Dates: start: 20170212
  3. HUMULIN R [Suspect]
     Active Substance: INSULIN HUMAN
     Dosage: 45 U, QD
     Route: 065
     Dates: start: 20170212
  4. MORPHINE [Concomitant]
     Active Substance: MORPHINE
     Indication: ARTHRALGIA

REACTIONS (5)
  - Oral candidiasis [Unknown]
  - Asthenia [Unknown]
  - Visual acuity reduced [Unknown]
  - Blood glucose increased [Unknown]
  - Malaise [Unknown]

NARRATIVE: CASE EVENT DATE: 20170212
